FAERS Safety Report 18163840 (Version 1)
Quarter: 2020Q3

REPORT INFORMATION
  Report Type: Spontaneous
  Country: US (occurrence: US)
  Receive Date: 20200818
  Receipt Date: 20200818
  Transmission Date: 20201103
  Serious: No
  Sender: FDA-Public Use
  Company Number: US-OTSUKA-2019_023515

PATIENT
  Age: 23 Year
  Sex: Female

DRUGS (3)
  1. ARIPIPRAZOLE. [Suspect]
     Active Substance: ARIPIPRAZOLE
     Indication: BIPOLAR I DISORDER
     Dosage: 15 MG, QD
     Route: 065
     Dates: start: 2015
  2. ABILIFY [Suspect]
     Active Substance: ARIPIPRAZOLE
     Indication: BIPOLAR I DISORDER
     Dosage: 15 MG, QD
     Route: 065
     Dates: start: 2005, end: 2015
  3. ARIPIPRAZOLE. [Suspect]
     Active Substance: ARIPIPRAZOLE
     Dosage: 10 MG, QD
     Route: 065
     Dates: start: 201906

REACTIONS (6)
  - Compulsive shopping [Not Recovered/Not Resolved]
  - Fatigue [Not Recovered/Not Resolved]
  - Maternal exposure during breast feeding [Unknown]
  - Maternal exposure during pregnancy [Unknown]
  - Irritability [Not Recovered/Not Resolved]
  - Anxiety [Not Recovered/Not Resolved]

NARRATIVE: CASE EVENT DATE: 2010
